FAERS Safety Report 23580177 (Version 1)
Quarter: 2024Q1

REPORT INFORMATION
  Report Type: Spontaneous
  Country: US (occurrence: US)
  Receive Date: 20240229
  Receipt Date: 20240229
  Transmission Date: 20240410
  Serious: Yes (Other)
  Sender: FDA-Public Use
  Company Number: US-APELLIS PHARMACEUTICALS-APL-2024-003565

PATIENT

DRUGS (2)
  1. SYFOVRE [Suspect]
     Active Substance: PEGCETACOPLAN
     Indication: Product used for unknown indication
     Dosage: UNK, 1ST DOSE
  2. SYFOVRE [Suspect]
     Active Substance: PEGCETACOPLAN
     Dosage: UNK, 2ND DOSE

REACTIONS (2)
  - Iritis [Recovered/Resolved]
  - Choroidal neovascularisation [Unknown]
